FAERS Safety Report 8708040 (Version 2)
Quarter: 2013Q4

REPORT INFORMATION
  Report Type: Spontaneous
  Country: US (occurrence: US)
  Receive Date: 20120806
  Receipt Date: 20131101
  Transmission Date: 20140711
  Serious: No
  Sender: FDA-Public Use
  Company Number: US-009507513-1207USA001636

PATIENT
  Sex: Male

DRUGS (6)
  1. VICTRELIS [Suspect]
     Dosage: 800 MG, TID
     Route: 048
  2. PEGASYS [Concomitant]
  3. REBETOL [Concomitant]
     Dosage: 200 MG, UNK
  4. ASPIRIN [Concomitant]
     Dosage: 81 MG, UNK
  5. VERAMYST [Concomitant]
     Dosage: 27.5 MICROGRAM, UNK
  6. LEVOXYL [Concomitant]
     Dosage: 137 MICROGRAM, UNK

REACTIONS (1)
  - Fatigue [Unknown]
